FAERS Safety Report 18417079 (Version 1)
Quarter: 2020Q4

REPORT INFORMATION
  Report Type: Spontaneous
  Country: CN (occurrence: CN)
  Receive Date: 20201022
  Receipt Date: 20201022
  Transmission Date: 20210114
  Serious: Yes (Other)
  Sender: FDA-Public Use
  Company Number: CN-PFIZER INC-2020396881

PATIENT
  Age: 2 Year
  Sex: Male
  Weight: 12.5 kg

DRUGS (2)
  1. SOLU-MEDROL [Suspect]
     Active Substance: METHYLPREDNISOLONE SODIUM SUCCINATE
     Indication: BRONCHITIS
     Dosage: 25 MG, 2X/DAY
     Route: 041
     Dates: start: 20200928, end: 20200928
  2. GLUCOSE [Concomitant]
     Active Substance: DEXTROSE
     Indication: VEHICLE SOLUTION USE
     Dosage: 50 ML, 2X/DAY
     Route: 041
     Dates: start: 20200928, end: 20200928

REACTIONS (3)
  - Eyelid oedema [Recovered/Resolved]
  - Eyelid rash [Recovered/Resolved]
  - Pruritus [Recovered/Resolved]

NARRATIVE: CASE EVENT DATE: 20200928
